FAERS Safety Report 5615895-3 (Version None)
Quarter: 2008Q1

REPORT INFORMATION
  Report Type: 
  Country: None (occurrence: None)
  Receive Date: 20080201
  Receipt Date: 20080116
  Transmission Date: 20080703
  Serious: Yes (Hospitalization)
  Sender: FDA-Public Use
  Company Number: 2008JP000151

PATIENT
  Age: 14 Year
  Sex: 0

DRUGS (4)
  1. PROGRAF [Suspect]
     Indication: BONE MARROW TRANSPLANT
     Dosage: 0.02 MG/KG, CONTINUOUS, IV DRIP
     Route: 041
  2. METHOTREXATE FORMULATION [Concomitant]
  3. METHYLPREDNISOLONE [Concomitant]
  4. GRANULOCYTE COLONY STIMULATION FACTOR (GRANULOCYTE COLONY STIMULATING [Concomitant]

REACTIONS (1)
  - INAPPROPRIATE ANTIDIURETIC HORMONE SECRETION [None]
